FAERS Safety Report 5651806-2 (Version None)
Quarter: 2008Q1

REPORT INFORMATION
  Report Type: 
  Country: None (occurrence: None)
  Receive Date: 20080305
  Receipt Date: 20080221
  Transmission Date: 20080703
  Serious: Yes (Death, Other)
  Sender: FDA-Public Use
  Company Number: US-PFIZER INC-2008015423

PATIENT
  Sex: Female

DRUGS (4)
  1. CHANTIX [Suspect]
  2. LISINOPRIL [Concomitant]
  3. HYDROCHLOROTHIAZIDE [Concomitant]
  4. ALL OTHER THERAPEUTIC PRODUCTS [Concomitant]
     Indication: PAIN

REACTIONS (2)
  - BIOPSY BREAST [None]
  - COMPLETED SUICIDE [None]
